FAERS Safety Report 8567025-6 (Version None)
Quarter: 2012Q3

REPORT INFORMATION
  Report Type: 
  Country: None (occurrence: None)
  Receive Date: 20120803
  Receipt Date: 20111006
  Transmission Date: 20120928
  Serious: No
  Sender: FDA-Public Use
  Company Number: US-ABBOTT-11P-163-0860589-00

PATIENT
  Sex: Male
  Weight: 109.41 kg

DRUGS (8)
  1. LOVAZA [Concomitant]
     Indication: BLOOD TRIGLYCERIDES INCREASED
  2. AMBIEN [Concomitant]
     Indication: SLEEP DISORDER THERAPY
  3. XANAX [Concomitant]
     Indication: ANXIETY
  4. DIOVAN [Concomitant]
     Indication: HYPERTENSION
  5. METOPROLOL TARTRATE [Concomitant]
     Indication: HEART RATE IRREGULAR
  6. FISH OIL [Concomitant]
     Indication: BLOOD CHOLESTEROL INCREASED
  7. PRADAXA [Concomitant]
     Indication: HEART RATE IRREGULAR
  8. NIASPAN [Suspect]
     Indication: BLOOD TRIGLYCERIDES INCREASED
     Dates: start: 20101001

REACTIONS (2)
  - ARTHRALGIA [None]
  - PAIN IN EXTREMITY [None]
